FAERS Safety Report 5203502-3 (Version None)
Quarter: 2007Q1

REPORT INFORMATION
  Report Type: 
  Country: None (occurrence: None)
  Receive Date: 20070110
  Receipt Date: 20070104
  Transmission Date: 20070707
  Serious: Yes (Other)
  Sender: FDA-Public Use
  Company Number: 2007UW00220

PATIENT
  Age: 71 Year
  Sex: Male

DRUGS (5)
  1. CRESTOR [Suspect]
     Route: 048
  2. BYETTA [Suspect]
     Route: 030
     Dates: start: 20051201
  3. BYETTA [Suspect]
     Route: 030
     Dates: end: 20061001
  4. METFORMIN HCL [Concomitant]
     Route: 048
  5. ACTOS [Concomitant]
     Route: 048

REACTIONS (1)
  - MYASTHENIA GRAVIS [None]
